FAERS Safety Report 22104806 (Version 2)
Quarter: 2023Q1

REPORT INFORMATION
  Report Type: Spontaneous
  Country: IT (occurrence: IT)
  Receive Date: 20230316
  Receipt Date: 20230328
  Transmission Date: 20230418
  Serious: Yes (Hospitalization, Other)
  Sender: FDA-Public Use
  Company Number: IT-TEVA-2023-IT-2866028

PATIENT
  Age: 31 Year
  Sex: Female

DRUGS (5)
  1. VALPROATE SODIUM [Suspect]
     Active Substance: VALPROATE SODIUM
     Indication: Epilepsy
     Dosage: 1000 MILLIGRAM DAILY;
     Route: 065
  2. LEVODOPA [Suspect]
     Active Substance: LEVODOPA
     Indication: Parkinsonism
     Dosage: 500 MILLIGRAM DAILY;
     Route: 065
  3. FLUPHENAZINE DECANOATE [Suspect]
     Active Substance: FLUPHENAZINE DECANOATE
     Indication: Respiratory tract infection
     Dosage: 25 MILLIGRAM DAILY; PROLONGED RELEASE; TOTAL DOSE 175MG (MORE THAN 0.3 MG/KG PER DAY)
     Route: 065
  4. CEFONICID SODIUM [Suspect]
     Active Substance: CEFONICID SODIUM
     Indication: Respiratory tract infection
     Dosage: 25 MILLIGRAM DAILY; SCHEDULED TO BE ADMINISTERED FOR 1 WEEK
     Route: 065
  5. AMANTADINE [Concomitant]
     Active Substance: AMANTADINE
     Indication: Parkinsonism
     Dosage: 200 MILLIGRAM DAILY;
     Route: 065

REACTIONS (6)
  - Parkinsonism [Recovering/Resolving]
  - Neurotoxicity [Recovering/Resolving]
  - Amnesia [Not Recovered/Not Resolved]
  - Drug ineffective [Unknown]
  - Loss of personal independence in daily activities [Recovered/Resolved]
  - Product prescribing error [Unknown]
